FAERS Safety Report 24201239 (Version 2)
Quarter: 2024Q3

REPORT INFORMATION
  Report Type: Spontaneous
  Country: JP (occurrence: JP)
  Receive Date: 20240812
  Receipt Date: 20240906
  Transmission Date: 20241017
  Serious: Yes (Hospitalization, Other)
  Sender: INCYTE
  Company Number: JP-002147023-NVSJ2024JP009303

PATIENT

DRUGS (1)
  1. RUXOLITINIB [Suspect]
     Active Substance: RUXOLITINIB
     Indication: Myelofibrosis
     Dosage: 5 MILLIGRAM
     Route: 048

REACTIONS (3)
  - Aspiration [Unknown]
  - Dehydration [Recovered/Resolved]
  - Pneumonia aspiration [Recovered/Resolved]
